FAERS Safety Report 23593406 (Version 2)
Quarter: 2024Q1

REPORT INFORMATION
  Report Type: Report from Study
  Country: CN (occurrence: CN)
  Receive Date: 20240304
  Receipt Date: 20240314
  Transmission Date: 20240410
  Serious: Yes (Hospitalization)
  Sender: FDA-Public Use
  Company Number: CN-ROCHE-3517571

PATIENT
  Sex: Female

DRUGS (1)
  1. GAVRETO [Suspect]
     Active Substance: PRALSETINIB
     Indication: Non-small cell lung cancer
     Route: 048
     Dates: start: 202307

REACTIONS (4)
  - Drug-induced liver injury [Recovering/Resolving]
  - Contrast media allergy [Recovered/Resolved]
  - Anaphylactic shock [Recovered/Resolved]
  - Chronic hepatitis [Recovering/Resolving]

NARRATIVE: CASE EVENT DATE: 20231030
